FAERS Safety Report 7005858-8 (Version None)
Quarter: 2010Q3

REPORT INFORMATION
  Report Type: 
  Country: None (occurrence: None)
  Receive Date: 20100921
  Receipt Date: 20100915
  Transmission Date: 20110219
  Serious: Yes (Congenital Anomaly, Other)
  Sender: FDA-Public Use
  Company Number: AU-ROXANE LABORATORIES, INC.-2010-RO-01231RO

PATIENT
  Sex: Male

DRUGS (4)
  1. MYCOPHENOLATE MOFETIL [Suspect]
     Indication: DRUG EXPOSURE DURING PREGNANCY
     Dosage: 500 MG
     Route: 064
  2. TACROLIMUS [Suspect]
     Indication: DRUG EXPOSURE DURING PREGNANCY
     Dosage: 4 MG
     Route: 064
  3. PREDNISOLONE [Suspect]
     Indication: DRUG EXPOSURE DURING PREGNANCY
     Dosage: 5 MG
     Route: 064
  4. LABETALOL HCL [Suspect]
     Indication: DRUG EXPOSURE DURING PREGNANCY
     Dosage: 400 MG
     Route: 064

REACTIONS (8)
  - CLEFT UVULA [None]
  - CONGENITAL EYELID MALFORMATION [None]
  - CONGENITAL JAW MALFORMATION [None]
  - DYSMORPHISM [None]
  - EXTERNAL AUDITORY CANAL ATRESIA [None]
  - MICROTIA [None]
  - PREMATURE BABY [None]
  - RETROGNATHIA [None]
